FAERS Safety Report 21381897 (Version 1)
Quarter: 2022Q3

REPORT INFORMATION
  Report Type: Spontaneous
  Country: CN (occurrence: CN)
  Receive Date: 20220927
  Receipt Date: 20220927
  Transmission Date: 20221027
  Serious: Yes (Other)
  Sender: FDA-Public Use
  Company Number: None

PATIENT
  Age: 66 Year
  Sex: Male
  Weight: 80 kg

DRUGS (2)
  1. CYCLOPHOSPHAMIDE [Suspect]
     Active Substance: CYCLOPHOSPHAMIDE
     Indication: Non-Hodgkin^s lymphoma
     Dosage: 600 MG, QD,IVGTT, DILUTED WITH 5% GLUCOSE INJECTION 250ML, DOSAGE FORM: POWDER INJECTION
     Route: 041
     Dates: start: 20220826, end: 20220827
  2. DEXTROSE MONOHYDRATE [Suspect]
     Active Substance: DEXTROSE MONOHYDRATE
     Indication: Medication dilution
     Dosage: 250 ML, QD,IVGTT, DILUTED WITH CYCLOPHOSPHAMIDE FOR INJECTION 600 MG
     Route: 041
     Dates: start: 20220826, end: 20220827

REACTIONS (1)
  - White blood cell count decreased [Recovering/Resolving]

NARRATIVE: CASE EVENT DATE: 20220905
